FAERS Safety Report 9307972 (Version 3)
Quarter: 2013Q4

REPORT INFORMATION
  Report Type: Report from Study
  Country: AU (occurrence: AU)
  Receive Date: 20130524
  Receipt Date: 20131022
  Transmission Date: 20140711
  Serious: Yes (Other)
  Sender: FDA-Public Use
  Company Number: AU-ROCHE-1227993

PATIENT
  Age: 66 Year
  Sex: Female
  Weight: 63 kg

DRUGS (24)
  1. HERCEPTIN [Suspect]
     Indication: BREAST CANCER METASTATIC
     Route: 065
     Dates: start: 200311
  2. HERCEPTIN [Suspect]
     Route: 065
     Dates: start: 200705
  3. HERCEPTIN [Suspect]
     Route: 065
     Dates: start: 200811
  4. HERCEPTIN [Suspect]
     Route: 065
     Dates: start: 200909
  5. HERCEPTIN [Suspect]
     Route: 065
     Dates: start: 201012
  6. HERCEPTIN [Suspect]
     Route: 065
     Dates: start: 201109
  7. HERCEPTIN [Suspect]
     Route: 065
     Dates: start: 201203
  8. XELODA [Suspect]
     Indication: BREAST CANCER METASTATIC
     Route: 065
     Dates: start: 200711
  9. XELODA [Suspect]
     Route: 065
     Dates: start: 200909
  10. XELODA [Suspect]
     Route: 065
     Dates: start: 201012
  11. XELODA [Suspect]
     Route: 065
     Dates: start: 201211
  12. TRASTUZUMAB EMTANSINE [Suspect]
     Indication: BREAST CANCER METASTATIC
     Route: 065
  13. LAPATINIB [Concomitant]
     Indication: BREAST CANCER METASTATIC
     Route: 065
     Dates: start: 200711
  14. LAPATINIB [Concomitant]
     Route: 065
     Dates: start: 201211
  15. COVERSYL [Concomitant]
     Indication: BREAST CANCER METASTATIC
  16. DOXORUBICIN [Concomitant]
     Indication: BREAST CANCER
     Route: 065
     Dates: start: 200207
  17. CYCLOPHOSPHAMIDE [Concomitant]
     Indication: BREAST CANCER
     Route: 065
     Dates: start: 200207
  18. PACLITAXEL [Concomitant]
     Indication: BREAST CANCER
     Route: 065
     Dates: start: 200211
  19. PACLITAXEL [Concomitant]
     Indication: BREAST CANCER METASTATIC
     Route: 065
     Dates: start: 200705
  20. PACLITAXEL [Concomitant]
     Route: 065
     Dates: start: 201203
  21. VINORELBINE [Concomitant]
     Indication: BREAST CANCER METASTATIC
     Route: 065
     Dates: start: 200311
  22. VINORELBINE [Concomitant]
     Route: 065
     Dates: start: 200811
  23. VINORELBINE [Concomitant]
     Route: 065
     Dates: start: 201109
  24. DOCETAXEL [Concomitant]
     Indication: BREAST CANCER METASTATIC
     Route: 065
     Dates: start: 200705

REACTIONS (1)
  - Disease progression [Unknown]
